FAERS Safety Report 16791803 (Version 1)
Quarter: 2019Q3

REPORT INFORMATION
  Report Type: Spontaneous
  Country: CA (occurrence: CA)
  Receive Date: 20190910
  Receipt Date: 20190910
  Transmission Date: 20191005
  Serious: Yes (Death)
  Sender: FDA-Public Use
  Company Number: CA-TEVA-2019-CA-1104811

PATIENT
  Age: 41 Year
  Sex: Female

DRUGS (6)
  1. ACETAMINOPHEN W/OXYCODONE HYDROCHLORIDE [Suspect]
     Active Substance: ACETAMINOPHEN\OXYCODONE HYDROCHLORIDE
     Indication: PHANTOM LIMB SYNDROME
     Dosage: 6 DOSAGE FORMS DAILY;
     Route: 048
  2. HYDROCHLOROTHIAZIDE/LOSARTAN POTASSIUM [Concomitant]
     Active Substance: HYDROCHLOROTHIAZIDE\LOSARTAN POTASSIUM
  3. GABAPENTIN. [Concomitant]
     Active Substance: GABAPENTIN
  4. ZOPICLONE [Concomitant]
     Active Substance: ZOPICLONE
  5. ALPRAZOLAM. [Suspect]
     Active Substance: ALPRAZOLAM
     Indication: ANXIETY
     Route: 048
  6. SERTRALINE [Concomitant]
     Active Substance: SERTRALINE HYDROCHLORIDE

REACTIONS (3)
  - Drug screen positive [Fatal]
  - Toxicity to various agents [Fatal]
  - Toxicologic test abnormal [Fatal]
